FAERS Safety Report 6083109-9 (Version None)
Quarter: 2009Q1

REPORT INFORMATION
  Report Type: 
  Country: None (occurrence: None)
  Receive Date: 20090213
  Receipt Date: 20090213
  Transmission Date: 20090719
  Serious: Yes (Other)
  Sender: FDA-Public Use
  Company Number: None

PATIENT
  Age: 63 Year
  Sex: Female
  Weight: 75.2971 kg

DRUGS (1)
  1. ZIPRASIDONE HCL [Suspect]
     Indication: BIPOLAR DISORDER
     Dosage: 40 BID PO
     Route: 048
     Dates: start: 20090211, end: 20090212

REACTIONS (4)
  - CONFUSIONAL STATE [None]
  - DELIRIUM [None]
  - HALLUCINATION, AUDITORY [None]
  - MENTAL STATUS CHANGES [None]
